FAERS Safety Report 5675788-2 (Version None)
Quarter: 2008Q1

REPORT INFORMATION
  Report Type: 
  Country: None (occurrence: None)
  Receive Date: 20080320
  Receipt Date: 20080311
  Transmission Date: 20080703
  Serious: No
  Sender: FDA-Public Use
  Company Number: APP200800189

PATIENT
  Age: 36 Year
  Sex: Female

DRUGS (2)
  1. HEPARIN SODIUM INJECTION [Suspect]
     Indication: PREGNANCY
     Dosage: 10000 USP UNITS (5000 USP UNITS, 2 IN 1 D), SUBCUTANEOUS
     Route: 058
     Dates: start: 20080101
  2. HEPARIN [Suspect]
     Indication: PREGNANCY
     Dosage: 10000 USP UNITS (5000 USP UNITS, 2 IN 1 D), SUBCUTANEOUS
     Route: 058
     Dates: start: 20070101, end: 20080101

REACTIONS (3)
  - DRUG EXPOSURE DURING PREGNANCY [None]
  - INJECTION SITE IRRITATION [None]
  - PHARMACEUTICAL PRODUCT COMPLAINT [None]
